FAERS Safety Report 22626476 (Version 1)
Quarter: 2023Q2

REPORT INFORMATION
  Report Type: Spontaneous
  Country: JP (occurrence: JP)
  Receive Date: 20230621
  Receipt Date: 20230621
  Transmission Date: 20230721
  Serious: Yes (Other)
  Sender: FDA-Public Use
  Company Number: JP-NEUROCRINE BIOSCIENCES INC.-2023NBI05170

PATIENT

DRUGS (1)
  1. VALBENAZINE [Suspect]
     Active Substance: VALBENAZINE
     Dosage: 40 MILLIGRAM, QD
     Route: 048
     Dates: start: 202301, end: 20230216

REACTIONS (6)
  - Feeding disorder [Unknown]
  - Dyskinesia [Recovered/Resolved]
  - Dyskinesia [Unknown]
  - Speech disorder [Unknown]
  - Hypoaesthesia oral [Unknown]
  - Malaise [Unknown]
